FAERS Safety Report 7037989-0 (Version None)
Quarter: 2010Q4

REPORT INFORMATION
  Report Type: 
  Country: None (occurrence: None)
  Receive Date: 20101011
  Receipt Date: 20101001
  Transmission Date: 20110411
  Serious: Yes (Hospitalization)
  Sender: FDA-Public Use
  Company Number: US-BAXTER-2010BH024304

PATIENT
  Sex: Male

DRUGS (1)
  1. DIANEAL [Suspect]
     Indication: PERITONEAL DIALYSIS
     Route: 033
     Dates: end: 20100824

REACTIONS (9)
  - COLON NEOPLASM [None]
  - DEHYDRATION [None]
  - DIARRHOEA [None]
  - FLUID OVERLOAD [None]
  - HAEMOGLOBIN DECREASED [None]
  - NAUSEA [None]
  - PRECANCEROUS CELLS PRESENT [None]
  - STOMACH MASS [None]
  - VOMITING [None]
